FAERS Safety Report 16974680 (Version 1)
Quarter: 2019Q4

REPORT INFORMATION
  Report Type: Report from Study
  Country: None (occurrence: US)
  Receive Date: 20191030
  Receipt Date: 20191030
  Transmission Date: 20200122
  Serious: Yes (Hospitalization)
  Sender: FDA-Public Use
  Company Number: US-ABBVIE-19K-163-2975787-00

PATIENT
  Age: 15 Year
  Sex: Male
  Weight: 45.85 kg

DRUGS (1)
  1. HUMIRA [Suspect]
     Active Substance: ADALIMUMAB
     Indication: COLITIS ULCERATIVE
     Route: 058
     Dates: start: 201909

REACTIONS (6)
  - Haemoglobin decreased [Unknown]
  - Swelling [Unknown]
  - Device issue [Recovered/Resolved]
  - Colitis ulcerative [Unknown]
  - Vomiting [Unknown]
  - Clostridium difficile infection [Unknown]

NARRATIVE: CASE EVENT DATE: 201910
